FAERS Safety Report 19989983 (Version 1)
Quarter: 2021Q4

REPORT INFORMATION
  Report Type: Spontaneous
  Country: IT (occurrence: IT)
  Receive Date: 20211025
  Receipt Date: 20211025
  Transmission Date: 20220303
  Serious: Yes (Other)
  Sender: FDA-Public Use
  Company Number: IT-ALFASIGMA-2021.17863

PATIENT
  Age: 26 Year
  Sex: Male

DRUGS (5)
  1. AMOXICILLIN [Suspect]
     Active Substance: AMOXICILLIN
     Indication: Cutaneous leishmaniasis
     Dosage: UNK
     Route: 065
  2. FLUCONAZOLE [Suspect]
     Active Substance: FLUCONAZOLE
     Indication: Cutaneous leishmaniasis
     Dosage: 400 MILLIGRAM, ONCE A DAY
     Route: 048
  3. FLUCONAZOLE [Suspect]
     Active Substance: FLUCONAZOLE
     Indication: Mucocutaneous leishmaniasis
  4. LEVOFLOXACIN [Suspect]
     Active Substance: LEVOFLOXACIN
     Indication: Cutaneous leishmaniasis
     Dosage: UNK
     Route: 065
  5. AMPHOTERICIN B [Suspect]
     Active Substance: AMPHOTERICIN B
     Indication: Cutaneous leishmaniasis
     Dosage: UNK
     Route: 065

REACTIONS (5)
  - Drug ineffective for unapproved indication [Unknown]
  - Asthenia [Recovered/Resolved]
  - Pain [Recovered/Resolved]
  - Drug effective for unapproved indication [Unknown]
  - Off label use [Unknown]
